FAERS Safety Report 8088484-1 (Version None)
Quarter: 2012Q1

REPORT INFORMATION
  Report Type: 
  Country: None (occurrence: None)
  Receive Date: 20120128
  Receipt Date: 20110414
  Transmission Date: 20120608
  Serious: No
  Sender: FDA-Public Use
  Company Number: US-ABBOTT-11P-163-0719936-00

PATIENT
  Sex: Male
  Weight: 113.5 kg

DRUGS (5)
  1. HUMIRA [Suspect]
     Indication: CROHN'S DISEASE
     Dates: start: 20100401, end: 20110201
  2. AZATHIOPRINE [Concomitant]
     Indication: CROHN'S DISEASE
  3. HUMIRA [Suspect]
     Indication: COLITIS ULCERATIVE
     Dates: start: 20110201
  4. ASACOL [Concomitant]
     Indication: CROHN'S DISEASE
  5. LOSARTAN POTASSIUM [Concomitant]
     Indication: CROHN'S DISEASE

REACTIONS (2)
  - WEIGHT LOSS POOR [None]
  - ABDOMINAL DISTENSION [None]
